FAERS Safety Report 7344082-6 (Version None)
Quarter: 2011Q1

REPORT INFORMATION
  Report Type: 
  Country: None (occurrence: None)
  Receive Date: 20110310
  Receipt Date: 20100531
  Transmission Date: 20110831
  Serious: No
  Sender: FDA-Public Use
  Company Number: A0862948A

PATIENT
  Age: 22 Year
  Sex: Female

DRUGS (1)
  1. NICORETTE (MINT) [Suspect]

REACTIONS (5)
  - NICOTINE DEPENDENCE [None]
  - NIGHTMARE [None]
  - DRUG ADMINISTRATION ERROR [None]
  - HEADACHE [None]
  - STRESS [None]
